FAERS Safety Report 4716708-4 (Version None)
Quarter: 2005Q3

REPORT INFORMATION
  Report Type: 
  Country: None (occurrence: None)
  Receive Date: 20050714
  Receipt Date: 20050711
  Transmission Date: 20060218
  Serious: Yes (Hospitalization, Other)
  Sender: FDA-Public Use
  Company Number: ITWYE597319APR05

PATIENT
  Age: 55 Year
  Sex: Female

DRUGS (27)
  1. RAPAMUNE [Suspect]
     Indication: PROPHYLAXIS AGAINST TRANSPLANT REJECTION
     Dosage: SEE IMAGE
     Route: 048
     Dates: start: 20050102, end: 20050102
  2. RAPAMUNE [Suspect]
     Indication: PROPHYLAXIS AGAINST TRANSPLANT REJECTION
     Dosage: SEE IMAGE
     Route: 048
     Dates: start: 20050103, end: 20050202
  3. RAPAMUNE [Suspect]
     Indication: PROPHYLAXIS AGAINST TRANSPLANT REJECTION
     Dosage: SEE IMAGE
     Route: 048
     Dates: start: 20050203, end: 20050203
  4. RAPAMUNE [Suspect]
     Indication: PROPHYLAXIS AGAINST TRANSPLANT REJECTION
     Dosage: SEE IMAGE
     Route: 048
     Dates: start: 20050204, end: 20050216
  5. RAPAMUNE [Suspect]
     Indication: PROPHYLAXIS AGAINST TRANSPLANT REJECTION
     Dosage: SEE IMAGE
     Route: 048
     Dates: start: 20050217, end: 20050323
  6. RAPAMUNE [Suspect]
     Indication: PROPHYLAXIS AGAINST TRANSPLANT REJECTION
     Dosage: SEE IMAGE
     Route: 048
     Dates: start: 20050324, end: 20050421
  7. RAPAMUNE [Suspect]
     Indication: PROPHYLAXIS AGAINST TRANSPLANT REJECTION
     Dosage: SEE IMAGE
     Route: 048
     Dates: start: 20050422, end: 20050422
  8. RAPAMUNE [Suspect]
     Indication: PROPHYLAXIS AGAINST TRANSPLANT REJECTION
     Dosage: SEE IMAGE
     Route: 048
     Dates: start: 20050423, end: 20050506
  9. RAPAMUNE [Suspect]
     Indication: PROPHYLAXIS AGAINST TRANSPLANT REJECTION
     Dosage: SEE IMAGE
     Route: 048
     Dates: start: 20050507, end: 20050629
  10. RANITIDINE [Concomitant]
  11. SULFAMETHOXAZOLE + TRIMETHOPRIM [Concomitant]
  12. VENLAFAXINE HCL [Concomitant]
  13. VENLAFAXINE HCL [Concomitant]
  14. LORAZEPAM [Concomitant]
  15. FLUVASTATIN (FLUVASTATIN) [Concomitant]
  16. FUROSEMIDE [Concomitant]
  17. SIMULECT [Concomitant]
  18. SIMULECT [Concomitant]
  19. METHYLPREDNISOLONE [Concomitant]
  20. METHYLPREDNISOLONE [Concomitant]
  21. METHYLPREDNISOLONE [Concomitant]
  22. PREDNISONE [Concomitant]
  23. PREDNISONE [Concomitant]
  24. PREDNISONE [Concomitant]
  25. PREDNISONE [Concomitant]
  26. PREDNISONE [Concomitant]
  27. PREDNISONE [Concomitant]

REACTIONS (7)
  - ASCITES [None]
  - CARBOHYDRATE ANTIGEN 125 INCREASED [None]
  - LABORATORY TEST ABNORMAL [None]
  - LYMPHOCELE [None]
  - LYMPHOEDEMA [None]
  - PERICARDIAL EFFUSION [None]
  - PLEURAL EFFUSION [None]
